FAERS Safety Report 24437827 (Version 1)
Quarter: 2024Q4

REPORT INFORMATION
  Report Type: Spontaneous
  Country: CA (occurrence: CA)
  Receive Date: 20241015
  Receipt Date: 20241015
  Transmission Date: 20250114
  Serious: Yes (Other)
  Sender: AMERICAN REGENT
  Company Number: CA-AMERICAN REGENT INC-2024003472

PATIENT
  Age: 40 Year
  Sex: Female

DRUGS (4)
  1. VENOFER [Suspect]
     Active Substance: IRON SUCROSE
     Indication: Iron deficiency anaemia
     Dosage: FIRST DOSE
     Route: 065
  2. VENOFER [Suspect]
     Active Substance: IRON SUCROSE
     Indication: Anaemia of pregnancy
     Dosage: SECOND DOSE
     Route: 065
     Dates: start: 20240425, end: 20240425
  3. VENOFER [Suspect]
     Active Substance: IRON SUCROSE
     Dosage: 300 MILLIGRAM IN 250 ML NS INFUSING AT 145ML/HR LAST DOSE-THIRD DOSE
     Dates: start: 20240508, end: 20240508
  4. ADMELOG [Concomitant]
     Active Substance: INSULIN LISPRO
     Indication: Iron deficiency anaemia
     Dosage: 16 UNITS (PREFILLED SYRINGE)
     Route: 065

REACTIONS (6)
  - Photopsia [Recovered/Resolved]
  - Injected limb mobility decreased [Unknown]
  - Maternal exposure during pregnancy [Unknown]
  - Blood glucose decreased [Unknown]
  - Headache [Unknown]
  - Injection site swelling [Unknown]

NARRATIVE: CASE EVENT DATE: 20240425
